FAERS Safety Report 5014053-3 (Version None)
Quarter: 2006Q2

REPORT INFORMATION
  Report Type: 
  Country: None (occurrence: None)
  Receive Date: 20060525
  Receipt Date: 20060509
  Transmission Date: 20061013
  Serious: Yes (Other)
  Sender: FDA-Public Use
  Company Number: CA200605002594

PATIENT
  Age: 69 Year
  Sex: Male

DRUGS (14)
  1. FORTEO [Suspect]
     Indication: OSTEOPOROSIS
     Dosage: 20 U G, DAILY (1/D)
     Dates: start: 20060308
  2. HUMALOG [Concomitant]
  3. HUMULIN R [Concomitant]
  4. ATACAND [Concomitant]
  5. ALTACE [Concomitant]
  6. METFORMIN [Concomitant]
  7. ASPIRIN [Concomitant]
  8. CRESTOR [Concomitant]
  9. FOLIC ACID [Concomitant]
  10. OMEGA 3 (FISH OIL) [Concomitant]
  11. CALCIUM CARBONATE (CALCIUM CARBONATE) [Concomitant]
  12. VITAMIN D [Concomitant]
  13. GLUCOSAMINE (GLUCOSAMINE) [Concomitant]
  14. FORTEO [Concomitant]

REACTIONS (1)
  - EXTRASYSTOLES [None]
